FAERS Safety Report 8232187-7 (Version None)
Quarter: 2012Q1

REPORT INFORMATION
  Report Type: 
  Country: None (occurrence: None)
  Receive Date: 20120323
  Receipt Date: 20120313
  Transmission Date: 20120608
  Serious: Yes (Life-Threatening)
  Sender: FDA-Public Use
  Company Number: IT-NOVOPROD-347257

PATIENT
  Age: 83 Year
  Sex: Male

DRUGS (8)
  1. CALCIUM CARBONATE [Concomitant]
  2. ARIXTRA [Concomitant]
  3. LANOXIN [Concomitant]
  4. LASIX [Concomitant]
  5. ANDROCUR [Concomitant]
  6. NOVORAPID PENFILL [Suspect]
     Indication: TYPE 1 DIABETES MELLITUS
     Dosage: 33 U/ML
     Route: 058
     Dates: start: 20110101
  7. RENAGEL [Concomitant]
  8. NOVOMIX 50 FLEXPEN [Suspect]
     Indication: TYPE 1 DIABETES MELLITUS
     Dosage: 22 U/ML, QD
     Route: 058
     Dates: start: 20110101

REACTIONS (2)
  - SOPOR [None]
  - HYPOGLYCAEMIA [None]
